FAERS Safety Report 8546549-1 (Version None)
Quarter: 2012Q3

REPORT INFORMATION
  Report Type: 
  Country: None (occurrence: None)
  Receive Date: 20120727
  Receipt Date: 20111222
  Transmission Date: 20120928
  Serious: No
  Sender: FDA-Public Use
  Company Number: US-ASTRAZENECA-2011SE77974

PATIENT
  Sex: Female

DRUGS (9)
  1. SEROQUEL XR [Suspect]
     Indication: SLEEP DISORDER
     Route: 048
  2. EXELON [Concomitant]
  3. ASPIRIN [Concomitant]
  4. METOPROLOL TARTRATE [Concomitant]
  5. FUROSEMIDE [Concomitant]
  6. SIMVASTATIN [Concomitant]
  7. MANMADHA [Concomitant]
  8. AMLODIPINE [Concomitant]
  9. KLOR-CON [Concomitant]

REACTIONS (8)
  - MALAISE [None]
  - ARTHRITIS [None]
  - PAIN [None]
  - OFF LABEL USE [None]
  - BACK PAIN [None]
  - SPINAL DISORDER [None]
  - PAIN IN EXTREMITY [None]
  - MUSCULOSKELETAL PAIN [None]
